FAERS Safety Report 6785258-6 (Version None)
Quarter: 2010Q2

REPORT INFORMATION
  Report Type: 
  Country: None (occurrence: None)
  Receive Date: 20100622
  Receipt Date: 20100618
  Transmission Date: 20101027
  Serious: Yes (Hospitalization)
  Sender: FDA-Public Use
  Company Number: FR-BRISTOL-MYERS SQUIBB COMPANY-15156045

PATIENT
  Age: 4 Decade
  Sex: Female

DRUGS (1)
  1. ABILIFY [Suspect]
     Indication: MANIA
     Dosage: REDUCED TO 5MG;START:7 TO 8MONTHS AGO

REACTIONS (2)
  - INTESTINAL OBSTRUCTION [None]
  - PULMONARY EMBOLISM [None]
